FAERS Safety Report 6595189-2 (Version None)
Quarter: 2010Q1

REPORT INFORMATION
  Report Type: 
  Country: None (occurrence: None)
  Receive Date: 20100212
  Receipt Date: 20100125
  Transmission Date: 20100710
  Serious: Yes (Death)
  Sender: FDA-Public Use
  Company Number: 2010000735

PATIENT
  Age: 25 Year
  Sex: Female

DRUGS (4)
  1. AMRIX [Suspect]
  2. DILTIAZEM [Suspect]
  3. METOPROLOL (METOPROLOL) [Suspect]
  4. ETHANOL (ETHANOL) [Suspect]

REACTIONS (1)
  - COMPLETED SUICIDE [None]
